FAERS Safety Report 5821019-X (Version None)
Quarter: 2008Q3

REPORT INFORMATION
  Report Type: 
  Country: None (occurrence: None)
  Receive Date: 20080721
  Receipt Date: 20080709
  Transmission Date: 20090109
  Serious: Yes (Other)
  Sender: FDA-Public Use
  Company Number: SPI200800341

PATIENT
  Age: 54 Year
  Sex: Female
  Weight: 170.1 kg

DRUGS (8)
  1. AMITIZA [Suspect]
     Indication: CONSTIPATION
     Dosage: 24 MCG, BID, ORAL
     Route: 048
     Dates: start: 20080404, end: 20080414
  2. METFORMIN HCL [Concomitant]
  3. NEXIUM [Concomitant]
  4. TOPROL-XL [Concomitant]
  5. FOSAMAX [Concomitant]
  6. LIPITOR [Concomitant]
  7. ESTRACE [Concomitant]
  8. LISINOPRIL [Concomitant]

REACTIONS (1)
  - PUPIL FIXED [None]
